FAERS Safety Report 20455678 (Version 2)
Quarter: 2022Q3

REPORT INFORMATION
  Report Type: Report from Study
  Country: US (occurrence: US)
  Receive Date: 20220210
  Receipt Date: 20220808
  Transmission Date: 20221027
  Serious: Yes (Hospitalization)
  Sender: FDA-Public Use
  Company Number: US-TAKEDA-2021TUS064968

PATIENT
  Sex: Male
  Weight: 106 kg

DRUGS (3)
  1. LANADELUMAB [Suspect]
     Active Substance: LANADELUMAB
     Indication: Product used for unknown indication
     Dosage: 300 GRAM, Q2WEEKS
     Route: 058
     Dates: start: 20200118
  2. LANADELUMAB [Suspect]
     Active Substance: LANADELUMAB
     Dosage: 300 GRAM, Q2WEEKS
     Route: 058
     Dates: start: 20200215
  3. ICATIBANT [Concomitant]
     Active Substance: ICATIBANT ACETATE
     Dosage: UNK
     Route: 065

REACTIONS (3)
  - Sinusitis [Unknown]
  - Hereditary angioedema [Unknown]
  - Illness [Unknown]
